FAERS Safety Report 15683297 (Version 1)
Quarter: 2018Q4

REPORT INFORMATION
  Report Type: Spontaneous
  Country: JP (occurrence: JP)
  Receive Date: 20181204
  Receipt Date: 20181204
  Transmission Date: 20190205
  Serious: Yes (Death, Hospitalization)
  Sender: FDA-Public Use
  Company Number: JP-ROCHE-2224123

PATIENT
  Age: 65 Year
  Sex: Male

DRUGS (1)
  1. TECENTRIQ [Suspect]
     Active Substance: ATEZOLIZUMAB
     Indication: LUNG ADENOCARCINOMA
     Route: 041
     Dates: start: 20180719, end: 20180802

REACTIONS (11)
  - White blood cell count increased [Unknown]
  - Dyspnoea [Unknown]
  - Condition aggravated [Unknown]
  - Pyrexia [Unknown]
  - Chest X-ray abnormal [Unknown]
  - Blood creatine phosphokinase decreased [Unknown]
  - Blood potassium increased [Unknown]
  - Sudden death [Fatal]
  - C-reactive protein increased [Unknown]
  - Hyponatraemia [Unknown]
  - Vomiting [Unknown]

NARRATIVE: CASE EVENT DATE: 20180814
